FAERS Safety Report 17534721 (Version 1)
Quarter: 2020Q1

REPORT INFORMATION
  Report Type: Spontaneous
  Country: US (occurrence: US)
  Receive Date: 20200312
  Receipt Date: 20200312
  Transmission Date: 20200409
  Serious: Yes (Other)
  Sender: FDA-Public Use
  Company Number: US-PFIZER INC-2020087357

PATIENT

DRUGS (1)
  1. THERMACARE ULTRA [Suspect]
     Active Substance: CAMPHOR (SYNTHETIC)\CAPSICUM OLEORESIN\MENTHOL\METHYL SALICYLATE
     Indication: MUSCLE STRAIN
     Dosage: UNK, 2X/DAY

REACTIONS (4)
  - Pain [Unknown]
  - Drug ineffective [Unknown]
  - Chemical burn [Unknown]
  - Skin weeping [Unknown]

NARRATIVE: CASE EVENT DATE: 20200226
